FAERS Safety Report 10479604 (Version 1)
Quarter: 2014Q3

REPORT INFORMATION
  Report Type: Report from Study
  Country: US (occurrence: US)
  Receive Date: 20140927
  Receipt Date: 20140927
  Transmission Date: 20150326
  Serious: Yes (Other)
  Sender: FDA-Public Use
  Company Number: US-ALEXION PHARMACEUTICALS INC-A200800789

PATIENT
  Sex: Male

DRUGS (1)
  1. SOLIRIS [Suspect]
     Active Substance: ECULIZUMAB
     Indication: PAROXYSMAL NOCTURNAL HAEMOGLOBINURIA
     Dosage: UNK
     Route: 042

REACTIONS (10)
  - Blood lactate dehydrogenase increased [Unknown]
  - Fatigue [Unknown]
  - Haemolysis [Unknown]
  - Dyspnoea [Unknown]
  - Quality of life decreased [Unknown]
  - Haemoglobinuria [Unknown]
  - Central venous catheterisation [Unknown]
  - Haemoglobin decreased [Unknown]
  - Contusion [Unknown]
  - Haematuria [Unknown]
